FAERS Safety Report 11726823 (Version 2)
Quarter: 2016Q1

REPORT INFORMATION
  Report Type: Report from Study
  Country: BR (occurrence: BR)
  Receive Date: 20151112
  Receipt Date: 20160205
  Transmission Date: 20160525
  Serious: Yes (Other)
  Sender: FDA-Public Use
  Company Number: BR-ABBVIE-15K-020-1442714-00

PATIENT
  Sex: Female

DRUGS (8)
  1. GLUCOSAMINE [Concomitant]
     Active Substance: GLUCOSAMINE
     Indication: RHEUMATOID ARTHRITIS
  2. VENLAFAXINE HYDROCHLORIDE. [Concomitant]
     Active Substance: VENLAFAXINE HYDROCHLORIDE
     Indication: FIBROMYALGIA
  3. HUMIRA [Suspect]
     Active Substance: ADALIMUMAB
     Indication: RHEUMATOID ARTHRITIS
     Route: 058
     Dates: start: 20130805
  4. CALCIUM [Concomitant]
     Active Substance: CALCIUM
     Indication: RHEUMATOID ARTHRITIS
  5. ALENDRONATE [Concomitant]
     Active Substance: ALENDRONATE SODIUM
     Indication: PRODUCT USED FOR UNKNOWN INDICATION
     Dates: end: 2014
  6. ARAVA [Concomitant]
     Active Substance: LEFLUNOMIDE
     Indication: RHEUMATOID ARTHRITIS
  7. VITAMIN D [Concomitant]
     Active Substance: CHOLECALCIFEROL
     Indication: RHEUMATOID ARTHRITIS
  8. CHONDROITIN [Concomitant]
     Active Substance: CHONDROITIN
     Indication: RHEUMATOID ARTHRITIS

REACTIONS (10)
  - Gait disturbance [Unknown]
  - Gait disturbance [Unknown]
  - Gait disturbance [Unknown]
  - Fracture pain [Not Recovered/Not Resolved]
  - Tooth fracture [Unknown]
  - Osteoporosis [Unknown]
  - Tendon disorder [Unknown]
  - Fall [Unknown]
  - Peripheral swelling [Unknown]
  - Femur fracture [Recovering/Resolving]

NARRATIVE: CASE EVENT DATE: 2014
